FAERS Safety Report 9271116 (Version 1)
Quarter: 2013Q2

REPORT INFORMATION
  Report Type: Spontaneous
  Country: AR (occurrence: AR)
  Receive Date: 20130506
  Receipt Date: 20130506
  Transmission Date: 20140414
  Serious: Yes (Other)
  Sender: FDA-Public Use
  Company Number: PHHY2013AR042449

PATIENT
  Sex: Female

DRUGS (1)
  1. ESPASMO CIBALENA [Suspect]
     Dosage: UNK

REACTIONS (6)
  - Renal disorder [Unknown]
  - Urinary tract infection [Unknown]
  - Pyrexia [Unknown]
  - Pain [Unknown]
  - Anger [Unknown]
  - Agitation [Unknown]
